FAERS Safety Report 5748888-6 (Version None)
Quarter: 2008Q2

REPORT INFORMATION
  Report Type: 
  Country: None (occurrence: None)
  Receive Date: 20080522
  Receipt Date: 20080513
  Transmission Date: 20081010
  Serious: Yes (Hospitalization)
  Sender: FDA-Public Use
  Company Number: WAES 0805ESP00025

PATIENT
  Age: 57 Year
  Sex: Female

DRUGS (7)
  1. INDOMETHACIN [Suspect]
     Indication: GOUT
     Dosage: PO
     Route: 048
     Dates: start: 20080101, end: 20080118
  2. BISOPROLOL FUMARATE [Concomitant]
  3. BROMAZEPAM [Concomitant]
  4. COLCHICINE (+) OPIUM, POWDERED (+), TIEMO [Concomitant]
  5. MIRTAZAPINE [Concomitant]
  6. OMEPRAZOLE [Concomitant]
  7. ZOLPIDEM TARTRATE [Concomitant]

REACTIONS (1)
  - RENAL FAILURE ACUTE [None]
